FAERS Safety Report 9013081 (Version 2)
Quarter: 2013Q1

REPORT INFORMATION
  Report Type: Spontaneous
  Country: US (occurrence: US)
  Receive Date: 20130115
  Receipt Date: 20130129
  Transmission Date: 20140127
  Serious: Yes (Other)
  Sender: FDA-Public Use
  Company Number: US-009507513-0911USA00611

PATIENT
  Age: 36 Month
  Sex: Male
  Weight: 18.6 kg

DRUGS (1)
  1. SINGULAIR [Suspect]
     Indication: MULTIPLE ALLERGIES
     Dosage: 1 DF, QD
     Route: 048
     Dates: start: 20090101, end: 20090401

REACTIONS (6)
  - Bruxism [Unknown]
  - Prescribed overdose [Unknown]
  - Mood altered [Unknown]
  - Muscle spasms [Unknown]
  - Thirst [Unknown]
  - Weight increased [Unknown]
